FAERS Safety Report 7206170-4 (Version None)
Quarter: 2010Q4

REPORT INFORMATION
  Report Type: 
  Country: None (occurrence: None)
  Receive Date: 20101221
  Receipt Date: 20101207
  Transmission Date: 20110411
  Serious: Yes (Death)
  Sender: FDA-Public Use
  Company Number: 2010005029

PATIENT
  Age: 68 Year
  Sex: Male

DRUGS (6)
  1. ERLOTINIB (ERLOTINIB) (TABLET) (ERLOTINIB) [Suspect]
     Indication: NON-SMALL CELL LUNG CANCER
     Dosage: 150 MG, (150 MG, 1 IN 1 D), ORAL
     Route: 048
     Dates: start: 20100416, end: 20100517
  2. DIOCTAHEDRAL SMECTITE [Concomitant]
  3. MUCOPECT (AMBROXOL HYDROCHLORIDE) [Concomitant]
  4. FUROSEMIDE [Concomitant]
  5. MAGACE (MEGESTROL ACETATE) [Concomitant]
  6. COUGH SYRUP [Concomitant]

REACTIONS (3)
  - CONDITION AGGRAVATED [None]
  - PNEUMONIA [None]
  - RESPIRATORY FAILURE [None]
